FAERS Safety Report 5418038-4 (Version None)
Quarter: 2007Q3

REPORT INFORMATION
  Report Type: 
  Country: None (occurrence: None)
  Receive Date: 20070817
  Receipt Date: 20070809
  Transmission Date: 20080115
  Serious: Yes (Hospitalization)
  Sender: FDA-Public Use
  Company Number: GB-AMGEN-US238845

PATIENT
  Sex: Male
  Weight: 107 kg

DRUGS (7)
  1. ENBREL [Suspect]
     Indication: RHEUMATOID ARTHRITIS
     Route: 058
     Dates: start: 20050120
  2. ALENDRONATE SODIUM [Concomitant]
     Dosage: UNKNOWN
  3. RIFINAH [Concomitant]
     Dosage: UNKNOWN
  4. MELOXICAM [Concomitant]
     Dosage: UNKNOWN
  5. PARACETAMOL [Concomitant]
     Dosage: UNKNOWN
  6. PREDNISOLONE [Concomitant]
     Dosage: UNKNOWN
  7. FOLIC ACID [Concomitant]
     Dosage: UNKNOWN

REACTIONS (2)
  - EMPYEMA [None]
  - PLEURAL EFFUSION [None]
